FAERS Safety Report 6653657-9 (Version None)
Quarter: 2010Q1

REPORT INFORMATION
  Report Type: 
  Country: None (occurrence: None)
  Receive Date: 20100326
  Receipt Date: 20081120
  Transmission Date: 20100710
  Serious: Yes (Hospitalization)
  Sender: FDA-Public Use
  Company Number: IN-PFIZER INC-2008057041

PATIENT
  Age: 28 Year
  Sex: Male
  Weight: 68 kg

DRUGS (10)
  1. *CALCIUM FOLINATE [Suspect]
     Indication: COLORECTAL CANCER METASTATIC
     Dosage: 200 MG/M2, EVERY 15 DAYS
     Route: 042
     Dates: start: 20080528
  2. *FLUOROURACIL [Suspect]
     Indication: COLORECTAL CANCER METASTATIC
     Dosage: 400 MG/M2, EVERY 15 DAYS
     Route: 040
     Dates: start: 20080529, end: 20080801
  3. *FLUOROURACIL [Suspect]
     Dosage: 2400 MG/M2, EVERY 15 DAYS
     Route: 041
     Dates: start: 20080529, end: 20080801
  4. BLINDED *NO SUBJECT DRUG [Suspect]
     Indication: COLORECTAL CANCER METASTATIC
     Dosage: 37.5 MG, 1X/DAY
     Route: 048
     Dates: start: 20080528
  5. BLINDED *PLACEBO [Suspect]
     Indication: COLORECTAL CANCER METASTATIC
     Dosage: 37.5 MG, 1X/DAY
     Route: 048
     Dates: start: 20080528
  6. BLINDED SUNITINIB MALATE [Suspect]
     Indication: COLORECTAL CANCER METASTATIC
     Dosage: 37.5 MG, 1X/DAY
     Route: 048
     Dates: start: 20080528
  7. IRINOTECAN HCL [Suspect]
     Indication: COLORECTAL CANCER METASTATIC
     Dosage: 180 MG/M2, EVERY 15 DAYS
     Route: 042
     Dates: start: 20080528
  8. DOMPERIDONE/PANTOPRAZOLE [Concomitant]
     Route: 048
     Dates: start: 20080528
  9. CYPROHEPTADINE HCL [Concomitant]
     Route: 048
     Dates: start: 20080528
  10. ONDANSETRON [Concomitant]
     Route: 048
     Dates: start: 20080702

REACTIONS (7)
  - ABDOMINAL PAIN [None]
  - DECREASED APPETITE [None]
  - DIARRHOEA [None]
  - DIZZINESS [None]
  - HYPOTENSION [None]
  - NAUSEA [None]
  - VOMITING [None]
